FAERS Safety Report 26205921 (Version 1)
Quarter: 2025Q4

REPORT INFORMATION
  Report Type: Spontaneous
  Country: JP (occurrence: JP)
  Receive Date: 20251229
  Receipt Date: 20251229
  Transmission Date: 20260117
  Serious: Yes (Death, Other)
  Sender: ADVANZ PHARMA
  Company Number: JP-ADVANZ PHARMA-202511011400

PATIENT

DRUGS (1)
  1. ZONISAMIDE [Suspect]
     Active Substance: ZONISAMIDE
     Indication: Product used for unknown indication
     Dosage: UNK (TRERIEF ORODISPERSIBLE TABLET)
     Route: 048

REACTIONS (1)
  - Pneumonia [Fatal]
